FAERS Safety Report 22151432 (Version 8)
Quarter: 2025Q2

REPORT INFORMATION
  Report Type: Spontaneous
  Country: US (occurrence: US)
  Receive Date: 20230329
  Receipt Date: 20250421
  Transmission Date: 20250716
  Serious: Yes (Hospitalization, Disabling, Other)
  Sender: PFIZER
  Company Number: US-PFIZER INC-2020343198

PATIENT
  Age: 48 Year
  Sex: Male

DRUGS (5)
  1. XYNTHA [Suspect]
     Active Substance: MOROCTOCOG ALFA
     Indication: Limb injury
  2. XYNTHA [Suspect]
     Active Substance: MOROCTOCOG ALFA
     Indication: Haemorrhage
  3. XYNTHA [Suspect]
     Active Substance: MOROCTOCOG ALFA
     Dosage: INFUSE 4000 UNITS DAILY X 2 WEEKS POST-OP.
  4. XYNTHA [Suspect]
     Active Substance: MOROCTOCOG ALFA
  5. XYNTHA [Suspect]
     Active Substance: MOROCTOCOG ALFA

REACTIONS (3)
  - Neoplasm [Unknown]
  - Pain [Unknown]
  - Off label use [Unknown]
